FAERS Safety Report 4331295-0 (Version None)
Quarter: 2004Q1

REPORT INFORMATION
  Report Type: 
  Country: None (occurrence: None)
  Receive Date: 20040331
  Receipt Date: 20040311
  Transmission Date: 20041129
  Serious: Yes (Hospitalization)
  Sender: FDA-Public Use
  Company Number: EWC040238170

PATIENT
  Age: 76 Year
  Sex: Male

DRUGS (10)
  1. PEMETREXED [Suspect]
     Indication: MESOTHELIOMA
     Dates: start: 20031127
  2. CARBOPLATIN [Suspect]
     Indication: MESOTHELIOMA
     Dosage: 600 MG
     Dates: start: 20041127
  3. FOLIC ACID [Concomitant]
  4. PROVERA [Concomitant]
  5. OMEPRAZOLE [Concomitant]
  6. PRIMPERAN TAB [Concomitant]
  7. AUGMENTIN [Concomitant]
  8. EPREX [Concomitant]
  9. PERENTEROL (YEAST DRIED) [Concomitant]
  10. DICLOFENAC SODIUM [Concomitant]

REACTIONS (2)
  - BRONCHITIS [None]
  - PYREXIA [None]
